FAERS Safety Report 18987790 (Version 2)
Quarter: 2021Q2

REPORT INFORMATION
  Report Type: Spontaneous
  Country: US (occurrence: US)
  Receive Date: 20210309
  Receipt Date: 20210413
  Transmission Date: 20210717
  Serious: No
  Sender: FDA-Public Use
  Company Number: US-ASTRAZENECA-2021A096618

PATIENT
  Age: 25775 Day
  Sex: Female
  Weight: 78 kg

DRUGS (5)
  1. BYDUREON [Suspect]
     Active Substance: EXENATIDE
     Indication: DIABETES MELLITUS
     Route: 058
  2. METFORMIN [Concomitant]
     Active Substance: METFORMIN HYDROCHLORIDE
  3. ATORVASTATIN [Concomitant]
     Active Substance: ATORVASTATIN
     Indication: BLOOD CHOLESTEROL
     Dosage: 10 DAILY
     Dates: end: 20210218
  4. LISINOPRIL. [Concomitant]
     Active Substance: LISINOPRIL
  5. JARDIANCE [Concomitant]
     Active Substance: EMPAGLIFLOZIN

REACTIONS (11)
  - Arthralgia [Recovered/Resolved]
  - Pain [Recovering/Resolving]
  - Device malfunction [Unknown]
  - Lethargy [Recovered/Resolved]
  - Bone pain [Recovered/Resolved]
  - Injection site mass [Not Recovered/Not Resolved]
  - Fall [Recovering/Resolving]
  - Visual impairment [Not Recovered/Not Resolved]
  - Contusion [Unknown]
  - Injection site haemorrhage [Not Recovered/Not Resolved]
  - Diarrhoea [Recovered/Resolved]

NARRATIVE: CASE EVENT DATE: 20210208
